FAERS Safety Report 24232037 (Version 1)
Quarter: 2024Q3

REPORT INFORMATION
  Report Type: Spontaneous
  Country: US (occurrence: US)
  Receive Date: 20240821
  Receipt Date: 20240821
  Transmission Date: 20241016
  Serious: Yes (Death)
  Sender: MUNDIPHARMA EDO
  Company Number: US-Mundipharma Research Limited-2160643

PATIENT

DRUGS (1)
  1. REZZAYO [Suspect]
     Active Substance: REZAFUNGIN
     Indication: Antifungal prophylaxis
     Route: 065

REACTIONS (2)
  - Central nervous system infection [Fatal]
  - Off label use [Unknown]
